FAERS Safety Report 24279161 (Version 3)
Quarter: 2024Q4

REPORT INFORMATION
  Report Type: Spontaneous
  Country: US (occurrence: US)
  Receive Date: 20240903
  Receipt Date: 20241118
  Transmission Date: 20250114
  Serious: No
  Sender: PFIZER
  Company Number: US-PFIZER INC-PV202400114001

PATIENT
  Age: 53 Year
  Sex: Female

DRUGS (9)
  1. DOCETAXEL [Suspect]
     Active Substance: DOCETAXEL
     Indication: Breast cancer metastatic
     Dosage: 150 MG, SINGLE (EVERY THREE WEEKS, 6 CYCLES)
     Dates: start: 20141023, end: 20141023
  2. DOCETAXEL [Suspect]
     Active Substance: DOCETAXEL
     Dosage: 150 MG, SINGLE (EVERY THREE WEEKS, 6 CYCLES)
     Dates: start: 20141113, end: 20141113
  3. DOCETAXEL [Suspect]
     Active Substance: DOCETAXEL
     Dosage: 150 MG, SINGLE (EVERY THREE WEEKS, 6 CYCLES)
     Dates: start: 20141204, end: 20141204
  4. DOCETAXEL [Suspect]
     Active Substance: DOCETAXEL
     Dosage: 150 MG, SINGLE (EVERY THREE WEEKS, 6 CYCLES)
     Dates: start: 20141223, end: 20141223
  5. DOCETAXEL [Suspect]
     Active Substance: DOCETAXEL
     Dosage: 150 MG, SINGLE (EVERY THREE WEEKS, 6 CYCLES)
     Dates: start: 20150115, end: 20150115
  6. DOCETAXEL [Suspect]
     Active Substance: DOCETAXEL
     Dosage: 150 MG, SINGLE (EVERY THREE WEEKS, 6 CYCLES)
     Dates: start: 20150205, end: 20150205
  7. CARBOPLATIN [Concomitant]
     Active Substance: CARBOPLATIN
     Indication: Chemotherapy
     Dosage: UNK
  8. HERCEPTIN [Concomitant]
     Active Substance: TRASTUZUMAB
     Indication: Chemotherapy
     Dosage: UNK
  9. PERJETA [Concomitant]
     Active Substance: PERTUZUMAB
     Indication: Chemotherapy
     Dosage: UNK

REACTIONS (3)
  - Lacrimal structure injury [Not Recovered/Not Resolved]
  - Eye irritation [Not Recovered/Not Resolved]
  - Lacrimation increased [Not Recovered/Not Resolved]

NARRATIVE: CASE EVENT DATE: 20141001
